FAERS Safety Report 13252437 (Version 2)
Quarter: 2017Q2

REPORT INFORMATION
  Report Type: Spontaneous
  Country: US (occurrence: US)
  Receive Date: 20170220
  Receipt Date: 20170417
  Transmission Date: 20170830
  Serious: No
  Sender: FDA-Public Use
  Company Number: US-PFIZER INC-2017069712

PATIENT
  Age: 7 Decade
  Sex: Female
  Weight: 73 kg

DRUGS (4)
  1. AMLODIPINE BESILATE [Suspect]
     Active Substance: AMLODIPINE BESYLATE
     Indication: STENT MALFUNCTION
     Dosage: 5 MG, 2X/DAY
     Route: 048
  2. LOTENSIN [Concomitant]
     Active Substance: BENAZEPRIL HYDROCHLORIDE
     Dosage: 20 MG, 2X/DAY
  3. TENORMIN [Concomitant]
     Active Substance: ATENOLOL
     Dosage: 20 MG, 2X/DAY
  4. PREVACID [Concomitant]
     Active Substance: LANSOPRAZOLE
     Indication: GASTROOESOPHAGEAL REFLUX DISEASE
     Dosage: 30 MG

REACTIONS (5)
  - Product use in unapproved indication [Unknown]
  - Foreign body [Unknown]
  - Throat irritation [Recovered/Resolved]
  - Dysphagia [Unknown]
  - Product solubility abnormal [Unknown]
